FAERS Safety Report 8902219 (Version 1)
Quarter: 2012Q4

REPORT INFORMATION
  Report Type: 
  Country: GB (occurrence: GB)
  Receive Date: 20121112
  Receipt Date: 20121112
  Transmission Date: 20130627
  Serious: Yes (Hospitalization)
  Sender: FDA-Public Use
  Company Number: GB-JNJFOC-20121103554

PATIENT
  Age: 80 Year
  Sex: Female
  Weight: 53 kg

DRUGS (7)
  1. XARELTO [Suspect]
     Indication: POSTOPERATIVE CARE
     Route: 048
  2. FLIXOTIDE [Concomitant]
     Route: 065
  3. OMEPRAZOLE [Concomitant]
     Route: 065
  4. RESPIRATORY SYSTEM [Concomitant]
     Route: 065
  5. LEVOTHYROXINE [Concomitant]
     Route: 065
  6. CALCICHEW [Concomitant]
     Route: 065
  7. FLUTICASONE [Concomitant]
     Route: 065

REACTIONS (4)
  - Dehydration [Recovered/Resolved]
  - Nausea [Recovered/Resolved]
  - Haemoglobin decreased [Recovered/Resolved]
  - Anaemia [Unknown]
